FAERS Safety Report 7596020-9 (Version None)
Quarter: 2011Q3

REPORT INFORMATION
  Report Type: 
  Country: None (occurrence: None)
  Receive Date: 20110707
  Receipt Date: 20110628
  Transmission Date: 20111222
  Serious: Yes (Other)
  Sender: FDA-Public Use
  Company Number: PHHY2011AU56873

PATIENT
  Sex: Female

DRUGS (2)
  1. ACCUTANE [Concomitant]
     Dosage: UNK
  2. LAMISIL [Suspect]
     Indication: ONYCHOMYCOSIS
     Route: 048
     Dates: start: 20110301

REACTIONS (3)
  - METRORRHAGIA [None]
  - ALOPECIA [None]
  - TENDONITIS [None]
